FAERS Safety Report 6428856-1 (Version None)
Quarter: 2009Q4

REPORT INFORMATION
  Report Type: 
  Country: None (occurrence: None)
  Receive Date: 20091103
  Receipt Date: 20091019
  Transmission Date: 20100525
  Serious: Yes (Death)
  Sender: FDA-Public Use
  Company Number: 2009BI033830

PATIENT
  Age: 75 Year
  Sex: Male

DRUGS (5)
  1. ZEVALIN [Suspect]
     Indication: DIFFUSE LARGE B-CELL LYMPHOMA REFRACTORY
  2. RITUXIMAB [Concomitant]
  3. MOTEXAFIN [Concomitant]
  4. GADOLINIUM [Concomitant]
  5. ANTIEMETIC [Concomitant]

REACTIONS (1)
  - ACCIDENTAL DEATH [None]
